FAERS Safety Report 18190778 (Version 2)
Quarter: 2020Q3

REPORT INFORMATION
  Report Type: Report from Study
  Country: US (occurrence: US)
  Receive Date: 20200825
  Receipt Date: 20200925
  Transmission Date: 20201103
  Serious: Yes (Other)
  Sender: FDA-Public Use
  Company Number: US-CLOVIS ONCOLOGY-CLO-2020-000344

PATIENT
  Sex: Female

DRUGS (4)
  1. RUBRACA [Suspect]
     Active Substance: RUCAPARIB CAMSYLATE
     Indication: OVARIAN CANCER
     Dosage: 600 MG, BID
     Route: 048
     Dates: start: 20191112
  2. AVASTIN [Suspect]
     Active Substance: BEVACIZUMAB
     Indication: OVARIAN CANCER
     Dosage: EVERY 3 WEEKS
     Route: 042
     Dates: start: 201911, end: 202008
  3. RUBRACA [Suspect]
     Active Substance: RUCAPARIB CAMSYLATE
     Indication: MALIGNANT PERITONEAL NEOPLASM
  4. RUBRACA [Suspect]
     Active Substance: RUCAPARIB CAMSYLATE
     Indication: RETROPERITONEAL CANCER
     Dosage: 600 MG, BID
     Route: 048
     Dates: start: 20200214

REACTIONS (26)
  - Pain [Recovered/Resolved]
  - Chills [Recovered/Resolved]
  - Vitamin B complex deficiency [Unknown]
  - Decreased appetite [Recovering/Resolving]
  - Malignant neoplasm progression [Unknown]
  - Weight decreased [Unknown]
  - Carbohydrate antigen 125 increased [Not Recovered/Not Resolved]
  - Platelet count decreased [Not Recovered/Not Resolved]
  - Glossodynia [Not Recovered/Not Resolved]
  - Fatigue [Recovering/Resolving]
  - Lethargy [Unknown]
  - Therapy partial responder [Unknown]
  - Pyrexia [Recovered/Resolved]
  - Abdominal discomfort [Unknown]
  - Nausea [Not Recovered/Not Resolved]
  - Cough [Recovered/Resolved]
  - Headache [Unknown]
  - Dry mouth [Not Recovered/Not Resolved]
  - Vitamin B12 decreased [Unknown]
  - Oral pain [Not Recovered/Not Resolved]
  - Dyspepsia [Unknown]
  - Device related infection [Unknown]
  - Anxiety [Unknown]
  - Tremor [Unknown]
  - Proteinuria [Unknown]
  - Taste disorder [Not Recovered/Not Resolved]

NARRATIVE: CASE EVENT DATE: 2020
